FAERS Safety Report 19987198 (Version 2)
Quarter: 2021Q4

REPORT INFORMATION
  Report Type: Spontaneous
  Country: GB (occurrence: GB)
  Receive Date: 20211022
  Receipt Date: 20211117
  Transmission Date: 20220303
  Serious: Yes (Other)
  Sender: FDA-Public Use
  Company Number: GB-NOVARTISPH-NVSC2021GB241071

PATIENT
  Age: 12 Year
  Sex: Male

DRUGS (1)
  1. TISAGENLECLEUCEL [Suspect]
     Active Substance: TISAGENLECLEUCEL
     Indication: Acute lymphocytic leukaemia recurrent
     Dosage: 4.6X10E6/KG
     Route: 042

REACTIONS (4)
  - Chronic graft versus host disease [Recovering/Resolving]
  - Scleroderma [Unknown]
  - Cytokine release syndrome [Unknown]
  - Joint range of motion decreased [Unknown]
